FAERS Safety Report 8282401-7 (Version None)
Quarter: 2012Q2

REPORT INFORMATION
  Report Type: 
  Country: None (occurrence: None)
  Receive Date: 20120413
  Receipt Date: 20120406
  Transmission Date: 20120825
  Serious: Yes (Other)
  Sender: FDA-Public Use
  Company Number: US-JNJFOC-20120403871

PATIENT
  Sex: Female

DRUGS (14)
  1. DOCETAXEL [Suspect]
     Route: 042
  2. NOV-002 [Suspect]
     Route: 058
  3. DOXORUBICIN HCL [Suspect]
     Route: 042
  4. DOXORUBICIN HCL [Suspect]
     Route: 042
  5. CYCLOPHOSPHAMIDE [Suspect]
     Route: 042
  6. CYCLOPHOSPHAMIDE [Suspect]
     Route: 042
  7. CYCLOPHOSPHAMIDE [Suspect]
     Route: 042
  8. DOCETAXEL [Suspect]
     Indication: BREAST CANCER
     Route: 042
  9. CYCLOPHOSPHAMIDE [Suspect]
     Indication: BREAST CANCER
     Route: 042
  10. DOXORUBICIN HCL [Suspect]
     Route: 042
  11. DOXORUBICIN HCL [Suspect]
     Indication: BREAST CANCER
     Route: 042
  12. DOCETAXEL [Suspect]
     Route: 042
  13. DOCETAXEL [Suspect]
     Route: 042
  14. NOV-002 [Suspect]
     Indication: BREAST CANCER
     Route: 042

REACTIONS (1)
  - MUSCULAR WEAKNESS [None]
